FAERS Safety Report 24020042 (Version 1)
Quarter: 2024Q2

REPORT INFORMATION
  Report Type: Spontaneous
  Country: US (occurrence: US)
  Receive Date: 20240627
  Receipt Date: 20240627
  Transmission Date: 20240715
  Serious: No
  Sender: FDA-Public Use
  Company Number: US-THERATECHNOLOGIES INC.-2024-THE-TES-000178

PATIENT

DRUGS (3)
  1. EGRIFTA SV [Suspect]
     Active Substance: TESAMORELIN ACETATE
     Indication: Lipodystrophy acquired
     Dosage: 1.4 MG, QD
     Route: 058
     Dates: start: 202404
  2. EGRIFTA SV [Suspect]
     Active Substance: TESAMORELIN ACETATE
     Dosage: UNK (INCORRECT DOSE)
     Route: 058
  3. EGRIFTA SV [Suspect]
     Active Substance: TESAMORELIN ACETATE
     Dosage: 1.4 MG, QD
     Route: 058

REACTIONS (2)
  - Wrong technique in product usage process [Unknown]
  - Incorrect dose administered [Unknown]
